FAERS Safety Report 14798332 (Version 3)
Quarter: 2018Q2

REPORT INFORMATION
  Report Type: Spontaneous
  Country: US (occurrence: US)
  Receive Date: 20180424
  Receipt Date: 20180524
  Transmission Date: 20180711
  Serious: No
  Sender: FDA-Public Use
  Company Number: US-PFIZER INC-2018161218

PATIENT
  Age: 83 Year
  Sex: Female
  Weight: 80.29 kg

DRUGS (8)
  1. LYRICA [Suspect]
     Active Substance: PREGABALIN
     Dosage: 50 MG, ONCE DAILY
     Route: 048
  2. PRAVASTATIN. [Concomitant]
     Active Substance: PRAVASTATIN
     Indication: BLOOD CHOLESTEROL ABNORMAL
     Dosage: 40 MG, 1X/DAY
     Route: 048
  3. LYRICA [Suspect]
     Active Substance: PREGABALIN
     Dosage: 50 MG, 3X/DAY
     Route: 048
  4. LYRICA [Suspect]
     Active Substance: PREGABALIN
     Indication: FIBROMYALGIA
     Dosage: 100 MG, 3 TIMES A DAY
     Route: 048
  5. LYRICA [Suspect]
     Active Substance: PREGABALIN
     Dosage: 50 MG, TWICE A DAY (FOR 1 WEEK, IN THE MORNING AND AFTERNOON)
     Route: 048
  6. DESVENLAFAXINE. [Concomitant]
     Active Substance: DESVENLAFAXINE
     Indication: EMOTIONAL DISORDER
     Dosage: 50 MG, 1X/DAY (ONE A DAY IN THE AFTERNOON)
     Route: 048
  7. DESVENLAFAXINE. [Concomitant]
     Active Substance: DESVENLAFAXINE
     Indication: FEELING ABNORMAL
  8. LYRICA [Suspect]
     Active Substance: PREGABALIN
     Dosage: 50 MG, 3 TIMES A DAY (FOR 2 WEEKS)
     Route: 048
     Dates: start: 20180326

REACTIONS (9)
  - Feeling abnormal [Unknown]
  - Poor quality sleep [Recovering/Resolving]
  - Constipation [Unknown]
  - Abdominal symptom [Unknown]
  - Malaise [Unknown]
  - Flatulence [Unknown]
  - Gastrointestinal pain [Not Recovered/Not Resolved]
  - Product use issue [Unknown]
  - Stress [Unknown]

NARRATIVE: CASE EVENT DATE: 201801
